FAERS Safety Report 7773714-3 (Version None)
Quarter: 2011Q3

REPORT INFORMATION
  Report Type: 
  Country: None (occurrence: None)
  Receive Date: 20110920
  Receipt Date: 20110907
  Transmission Date: 20111222
  Serious: Yes (Hospitalization)
  Sender: FDA-Public Use
  Company Number: UTC-010054

PATIENT
  Age: 30 Year
  Sex: Female
  Weight: 90.9 kg

DRUGS (3)
  1. TYVASO [Suspect]
     Indication: COR PULMONALE CHRONIC
     Dosage: 72 MCG (18 MCG, 4 IN 1 D), INHALATION
     Route: 055
     Dates: start: 20110817
  2. ADCIRCA [Concomitant]
  3. TRACLEER [Concomitant]

REACTIONS (1)
  - HYPOTENSION [None]
